FAERS Safety Report 15241209 (Version 1)
Quarter: 2018Q3

REPORT INFORMATION
  Report Type: Spontaneous
  Country: US (occurrence: US)
  Receive Date: 20180711
  Receipt Date: 20180711
  Transmission Date: 20181010
  Serious: No
  Sender: FDA-Public Use
  Company Number: None

PATIENT
  Sex: Female

DRUGS (4)
  1. FEMHRT [Suspect]
     Active Substance: ETHINYL ESTRADIOL\NORETHINDRONE ACETATE
  2. VIVELLE?DOT [Suspect]
     Active Substance: ESTRADIOL
  3. ESTRADIOL/LEVONORGESTEROL .04/.015 PATCH [Suspect]
     Active Substance: ETHINYL ESTRADIOL\LEVONORGESTREL
  4. DUAVEE [Suspect]
     Active Substance: BAZEDOXIFENE ACETATE\ESTROGENS, CONJUGATED

REACTIONS (1)
  - Drug ineffective [None]
